FAERS Safety Report 6493943-9 (Version None)
Quarter: 2009Q4

REPORT INFORMATION
  Report Type: 
  Country: None (occurrence: None)
  Receive Date: 20091214
  Receipt Date: 20081126
  Transmission Date: 20100525
  Serious: Yes (Life-Threatening)
  Sender: FDA-Public Use
  Company Number: US-BRISTOL-MYERS SQUIBB COMPANY-14421564

PATIENT
  Age: 44 Year
  Sex: Male

DRUGS (2)
  1. ABILIFY [Suspect]
     Indication: SCHIZOPHRENIA
     Dosage: ABOUT 1 MONTH AGO
  2. INVEGA [Concomitant]

REACTIONS (1)
  - DIABETIC KETOACIDOSIS [None]
